FAERS Safety Report 14954251 (Version 2)
Quarter: 2018Q4

REPORT INFORMATION
  Report Type: Report from Study
  Country: PL (occurrence: PL)
  Receive Date: 20180530
  Receipt Date: 20181002
  Transmission Date: 20190204
  Serious: Yes (Other)
  Sender: FDA-Public Use
  Company Number: PL-CHIESI USA INC.-PL-2018CHI000135

PATIENT
  Age: 0 Day
  Sex: Female
  Weight: .73 kg

DRUGS (2)
  1. CAFFEINE CITRATE. [Concomitant]
     Active Substance: CAFFEINE CITRATE
     Indication: PRODUCT USED FOR UNKNOWN INDICATION
     Dosage: UNK
     Dates: start: 20180516, end: 20180804
  2. CUROSURF [Suspect]
     Active Substance: PORACTANT ALFA
     Indication: NEONATAL RESPIRATORY DISTRESS SYNDROME
     Dosage: 1.8 ML, SINGLE
     Route: 039
     Dates: start: 20180516, end: 20180516

REACTIONS (3)
  - Neonatal hypoxia [Recovered/Resolved]
  - Infantile apnoea [Recovered/Resolved]
  - Bradycardia neonatal [Recovered/Resolved]

NARRATIVE: CASE EVENT DATE: 20180516
